FAERS Safety Report 7502243-7 (Version None)
Quarter: 2011Q2

REPORT INFORMATION
  Report Type: 
  Country: None (occurrence: None)
  Receive Date: 20110525
  Receipt Date: 20110513
  Transmission Date: 20111010
  Serious: Yes (Other)
  Sender: FDA-Public Use
  Company Number: US-AMGEN-USASP2011024990

PATIENT
  Sex: Female

DRUGS (1)
  1. SENSIPAR [Suspect]
     Indication: PARATHYROID TUMOUR BENIGN
     Dosage: 360 MG, BID
     Dates: start: 20080101

REACTIONS (1)
  - HYPERCALCAEMIA [None]
